FAERS Safety Report 20987825 (Version 2)
Quarter: 2022Q2

REPORT INFORMATION
  Report Type: Spontaneous
  Country: JP (occurrence: JP)
  Receive Date: 20220621
  Receipt Date: 20220628
  Transmission Date: 20220720
  Serious: Yes (Hospitalization, Other)
  Sender: FDA-Public Use
  Company Number: JP-PFIZER INC-PV202200000034

PATIENT
  Age: 43 Year
  Sex: Female
  Weight: 49.7 kg

DRUGS (4)
  1. METHOTREXATE [Suspect]
     Active Substance: METHOTREXATE
     Indication: Rheumatoid arthritis
     Dosage: 8 MG, WEEKLY
  2. METHOTREXATE [Suspect]
     Active Substance: METHOTREXATE
     Indication: Arthropathy
  3. INFLIXIMAB [Suspect]
     Active Substance: INFLIXIMAB
     Indication: Rheumatoid arthritis
     Dosage: 150 MG, DAILY (EVERY 8 WEEKS)
  4. INFLIXIMAB [Suspect]
     Active Substance: INFLIXIMAB
     Indication: Arthropathy

REACTIONS (4)
  - Nephritis [Recovered/Resolved]
  - Henoch-Schonlein purpura [Recovered/Resolved]
  - Off label use [Unknown]
  - Off label use [Unknown]
